FAERS Safety Report 21201510 (Version 1)
Quarter: 2022Q3

REPORT INFORMATION
  Report Type: Report from Study
  Country: US (occurrence: US)
  Receive Date: 20220811
  Receipt Date: 20220811
  Transmission Date: 20221026
  Serious: Yes (Other)
  Sender: FDA-Public Use
  Company Number: US-OTSUKA PHARMACEUTICAL NETHERLANDS B.V.-AUR-001611

PATIENT
  Age: 34 Year
  Sex: Female
  Weight: 136.98 kg

DRUGS (2)
  1. LUPKYNIS [Suspect]
     Active Substance: VOCLOSPORIN
     Indication: Lupus nephritis
     Dosage: 23.7 MILLIGRAM, BID
     Route: 048
     Dates: start: 20220416, end: 20220511
  2. BUMEX [Concomitant]
     Active Substance: BUMETANIDE
     Indication: Lupus nephritis
     Dosage: 2 MILLIGRAM, BID (TAKEN AS NEEDED)
     Route: 048
     Dates: start: 20220407

REACTIONS (3)
  - Acute kidney injury [Unknown]
  - Blood pressure increased [Recovered/Resolved]
  - Systemic lupus erythematosus [Recovered/Resolved]

NARRATIVE: CASE EVENT DATE: 20220506
